FAERS Safety Report 9815812 (Version 1)
Quarter: 2014Q1

REPORT INFORMATION
  Report Type: Spontaneous
  Country: CA (occurrence: CA)
  Receive Date: 20140114
  Receipt Date: 20140114
  Transmission Date: 20141002
  Serious: Yes (Hospitalization)
  Sender: FDA-Public Use
  Company Number: US-ASTELLAS-2014US000294

PATIENT
  Sex: Female

DRUGS (2)
  1. ADVAGRAF [Suspect]
     Indication: RENAL TRANSPLANT
     Dosage: 2.5 MG, UNKNOWN/D
     Route: 048
  2. ADVAGRAF [Suspect]
     Indication: LIVER TRANSPLANT

REACTIONS (1)
  - Hospitalisation [Unknown]
